FAERS Safety Report 6530744-7 (Version None)
Quarter: 2010Q1

REPORT INFORMATION
  Report Type: 
  Country: None (occurrence: None)
  Receive Date: 20100108
  Receipt Date: 20090114
  Transmission Date: 20100710
  Serious: No
  Sender: FDA-Public Use
  Company Number: A0763596A

PATIENT
  Age: 60 Year
  Sex: Female

DRUGS (5)
  1. LOVAZA [Suspect]
     Dosage: 2G TWICE PER DAY
     Route: 048
     Dates: start: 20080101, end: 20090112
  2. VERAPAMIL [Concomitant]
  3. PROTONIX [Concomitant]
  4. METFORMIN HYDROCHLORIDE [Concomitant]
  5. ASPIRIN [Concomitant]

REACTIONS (2)
  - DYSPNOEA [None]
  - GAIT DISTURBANCE [None]
